FAERS Safety Report 15928051 (Version 1)
Quarter: 2019Q1

REPORT INFORMATION
  Report Type: Spontaneous
  Country: CZ (occurrence: CZ)
  Receive Date: 20190206
  Receipt Date: 20190206
  Transmission Date: 20190417
  Serious: Yes (Hospitalization)
  Sender: FDA-Public Use
  Company Number: PHHY2019CZ025164

PATIENT
  Age: 36 Year
  Sex: Female

DRUGS (8)
  1. UREA. [Concomitant]
     Active Substance: UREA
     Indication: PSORIASIS
     Route: 065
  2. METHOTREXATE. [Suspect]
     Active Substance: METHOTREXATE
     Dosage: 15 MG, UNK
     Route: 065
  3. METHOTREXATE. [Suspect]
     Active Substance: METHOTREXATE
     Dosage: 17.5 MG, UNK
     Route: 065
     Dates: start: 201701
  4. METHOTREXATE. [Suspect]
     Active Substance: METHOTREXATE
     Indication: PSORIASIS
     Dosage: 7.5 MG, UNK
     Route: 065
     Dates: start: 201206
  5. REMICADE [Concomitant]
     Active Substance: INFLIXIMAB
     Indication: PSORIASIS
     Dosage: 5 MG/KG, UNK
     Route: 065
     Dates: start: 20120913, end: 201610
  6. VITAMIN D3 [Concomitant]
     Active Substance: CHOLECALCIFEROL
     Indication: PSORIASIS
     Dosage: UNK
     Route: 065
  7. LEFLUNOMIDE. [Concomitant]
     Active Substance: LEFLUNOMIDE
     Indication: PSORIASIS
     Route: 065
     Dates: start: 2008, end: 201102
  8. METHOTREXATE. [Suspect]
     Active Substance: METHOTREXATE
     Indication: PSORIATIC ARTHROPATHY
     Dosage: 5-10 MG, QW
     Route: 065
     Dates: start: 2004, end: 2008

REACTIONS (6)
  - Psoriasis [Recovered/Resolved]
  - Arthralgia [Unknown]
  - Suicide attempt [Unknown]
  - Drug ineffective [Not Recovered/Not Resolved]
  - Osteoarthritis [Unknown]
  - Psychotic disorder due to a general medical condition [Recovering/Resolving]
